FAERS Safety Report 8917245 (Version 4)
Quarter: 2013Q4

REPORT INFORMATION
  Report Type: Report from Study
  Country: JP (occurrence: JP)
  Receive Date: 20121120
  Receipt Date: 20131118
  Transmission Date: 20140711
  Serious: Yes (Hospitalization)
  Sender: FDA-Public Use
  Company Number: JP-VERTEX PHARMACEUTICAL INC.-AE-2012-009362

PATIENT
  Age: 62 Year
  Sex: Female

DRUGS (20)
  1. VX-950 (TELAPREVIR) [Suspect]
     Indication: CHRONIC HEPATITIS C
     Dosage: 2250 MG, QD
     Route: 048
     Dates: start: 20120313, end: 20120315
  2. VX-950 (TELAPREVIR) [Suspect]
     Dosage: 1500 MG, QD
     Route: 048
     Dates: start: 20120316, end: 20120531
  3. RIBAVIRIN [Suspect]
     Indication: CHRONIC HEPATITIS C
     Dosage: 400 MG, QD
     Route: 048
     Dates: start: 20120313, end: 20120320
  4. RIBAVIRIN [Suspect]
     Dosage: 200 MG, QD
     Route: 048
     Dates: start: 20120321, end: 20120509
  5. PEGINTRON [Suspect]
     Indication: CHRONIC HEPATITIS C
     Dosage: 1.5 ?G/KG, QW
     Route: 058
     Dates: start: 20120313, end: 20120531
  6. JUVELA N [Concomitant]
     Dosage: 400 MG, QD
     Route: 048
  7. GASMOTIN [Concomitant]
     Dosage: 10 MG, QD
     Route: 048
  8. BLOPRESS [Concomitant]
     Dosage: 8 MG, QD
     Route: 048
  9. NADIC [Concomitant]
     Dosage: 15 MG, QD
     Route: 048
  10. ALDACTONE A [Concomitant]
     Dosage: 25 MG, QD
     Route: 048
  11. METALCAPTASE [Concomitant]
     Dosage: 200 MG, QD
     Route: 048
  12. GASTER D [Concomitant]
     Dosage: 40 MG, QD
     Route: 048
  13. SELBEX [Concomitant]
     Dosage: 100 MG, QD
     Route: 048
  14. LOXONIN [Concomitant]
     Dosage: 60 MG, PRN
     Route: 048
     Dates: start: 20120313, end: 20120531
  15. LAC-B [Concomitant]
     Dosage: 3 G, QD
     Route: 048
     Dates: start: 20120316
  16. URINORM [Concomitant]
     Dosage: 50 MG, QD
     Route: 048
     Dates: start: 20120316
  17. URALYT [Concomitant]
     Dosage: 3 DF, QD
     Route: 048
     Dates: start: 20120316
  18. PRIMPERAN [Concomitant]
     Dosage: 3 DF, QD
     Route: 048
     Dates: start: 20120317, end: 20120502
  19. LOPEMIN [Concomitant]
     Dosage: 1 MG, PRN
     Route: 048
     Dates: start: 20120319
  20. AZUNOL [Concomitant]
     Dosage: UNK UNK, PRN
     Route: 061
     Dates: start: 20120319

REACTIONS (3)
  - White blood cell count decreased [Recovered/Resolved]
  - Haemoglobin decreased [Recovered/Resolved]
  - Diarrhoea [Recovered/Resolved]
